FAERS Safety Report 21234991 (Version 2)
Quarter: 2022Q4

REPORT INFORMATION
  Report Type: Spontaneous
  Country: CN (occurrence: CN)
  Receive Date: 20220821
  Receipt Date: 20221006
  Transmission Date: 20230113
  Serious: Yes (Other)
  Sender: FDA-Public Use
  Company Number: CN-SA-SAC20220817002364

PATIENT
  Age: 79 Year
  Sex: Female
  Weight: 54.3 kg

DRUGS (5)
  1. TOUJEO [Suspect]
     Active Substance: INSULIN GLARGINE
     Indication: Diabetes mellitus inadequate control
     Dosage: 16 IU, QD
     Route: 058
     Dates: start: 20220806, end: 20220808
  2. SPIRONOLACTONE [Suspect]
     Active Substance: SPIRONOLACTONE
     Indication: Blood potassium decreased
     Dosage: 20 MG, QD
     Route: 048
     Dates: start: 20220805, end: 20220808
  3. SPIRONOLACTONE [Suspect]
     Active Substance: SPIRONOLACTONE
     Indication: Hypertension
  4. DAPAGLIFLOZIN [Suspect]
     Active Substance: DAPAGLIFLOZIN
     Indication: Diabetes mellitus inadequate control
     Dosage: 10 MG, QD
     Route: 048
     Dates: start: 20220806, end: 20220808
  5. LEUCOGEN [Suspect]
     Active Substance: LEUCOGEN
     Indication: Leukopenia
     Dosage: 20 MG, TID
     Route: 048
     Dates: start: 20220805, end: 20220807

REACTIONS (1)
  - Rash [Recovering/Resolving]

NARRATIVE: CASE EVENT DATE: 20220807
